FAERS Safety Report 18099373 (Version 2)
Quarter: 2020Q3

REPORT INFORMATION
  Report Type: Spontaneous
  Country: US (occurrence: US)
  Receive Date: 20200731
  Receipt Date: 20200916
  Transmission Date: 20201103
  Serious: No
  Sender: FDA-Public Use
  Company Number: US-ASTRAZENECA-2020SE85786

PATIENT
  Age: 1134 Month
  Sex: Female
  Weight: 86.2 kg

DRUGS (2)
  1. SYMBICORT [Suspect]
     Active Substance: BUDESONIDE\FORMOTEROL FUMARATE DIHYDRATE
     Indication: ASTHMA
     Dosage: 80/4.5 TWO PUFFS ONCE EACH DAY AT NIGHT
     Route: 055
  2. SYMBICORT [Suspect]
     Active Substance: BUDESONIDE\FORMOTEROL FUMARATE DIHYDRATE
     Indication: ASTHMA
     Dosage: 80/4.5 TWO PUFFS TWICE A DAY
     Route: 055

REACTIONS (6)
  - Wrong technique in device usage process [Unknown]
  - Product use issue [Unknown]
  - Productive cough [Not Recovered/Not Resolved]
  - Device issue [Unknown]
  - Body height decreased [Not Recovered/Not Resolved]
  - Intentional device misuse [Not Recovered/Not Resolved]

NARRATIVE: CASE EVENT DATE: 202006
